FAERS Safety Report 15171053 (Version 1)
Quarter: 2018Q3

REPORT INFORMATION
  Report Type: Spontaneous
  Country: RO (occurrence: RO)
  Receive Date: 20180720
  Receipt Date: 20180720
  Transmission Date: 20181010
  Serious: Yes (Other)
  Sender: FDA-Public Use
  Company Number: RO-JNJFOC-20180718537

PATIENT
  Age: 60 Year
  Sex: Female

DRUGS (1)
  1. CAELYX [Suspect]
     Active Substance: DOXORUBICIN HYDROCHLORIDE
     Indication: OVARIAN CANCER
     Route: 065

REACTIONS (2)
  - Skin reaction [Recovered/Resolved]
  - Skin ulcer [Unknown]
